FAERS Safety Report 16333925 (Version 2)
Quarter: 2019Q2

REPORT INFORMATION
  Report Type: Spontaneous
  Country: US (occurrence: US)
  Receive Date: 20190520
  Receipt Date: 20190528
  Transmission Date: 20190711
  Serious: Yes (Hospitalization)
  Sender: FDA-Public Use
  Company Number: US-GLAXOSMITHKLINE-US2019AMR087970

PATIENT
  Age: 71 Year
  Sex: Female

DRUGS (3)
  1. MEPRON [Suspect]
     Active Substance: ATOVAQUONE
     Dosage: UNK
     Dates: start: 2016
  2. LORAZEPAM. [Concomitant]
     Active Substance: LORAZEPAM
     Indication: PRODUCT USED FOR UNKNOWN INDICATION
     Dosage: UNK
  3. MEPRON [Suspect]
     Active Substance: ATOVAQUONE
     Indication: PRODUCT USED FOR UNKNOWN INDICATION
     Dosage: UNK
     Route: 048
     Dates: start: 201507

REACTIONS (9)
  - Respiratory syncytial virus infection [Unknown]
  - Malaise [Unknown]
  - Road traffic accident [Unknown]
  - Renal disorder [Unknown]
  - Blood pressure increased [Unknown]
  - Respiratory syncytial virus test [Recovered/Resolved]
  - Claustrophobia [Unknown]
  - Osteoporosis [Unknown]
  - Bronchitis [Unknown]

NARRATIVE: CASE EVENT DATE: 20181029
